FAERS Safety Report 4476714-4 (Version None)
Quarter: 2004Q4

REPORT INFORMATION
  Report Type: 
  Country: None (occurrence: None)
  Receive Date: 20041013
  Receipt Date: 20040927
  Transmission Date: 20050328
  Serious: Yes (Disabling)
  Sender: FDA-Public Use
  Company Number: 8007465

PATIENT
  Age: 54 Year
  Sex: Female

DRUGS (14)
  1. KEPPRA [Suspect]
     Indication: BACK PAIN
     Dosage: 250 MG/D PO
     Route: 048
     Dates: start: 20040828, end: 20040903
  2. KEPPRA [Suspect]
     Indication: BACK PAIN
     Dosage: 250 MG 2/D PO
     Route: 048
     Dates: start: 20040904, end: 20040910
  3. KEPPRA [Suspect]
     Indication: BACK PAIN
     Dosage: 250 MG 3/D PO
     Route: 048
     Dates: start: 20040911
  4. METHADONE HCL [Concomitant]
  5. ARTHROTEC [Concomitant]
  6. AZULFIDINE [Concomitant]
  7. EFFEXOR XR [Concomitant]
  8. WELLBUTRIN SR [Concomitant]
  9. AMBIEN [Concomitant]
  10. FOLIC ACID [Concomitant]
  11. GLUCOSAMINE [Concomitant]
  12. IRON [Concomitant]
  13. VITAMIN C [Concomitant]
  14. MULTI-VITAMINS [Concomitant]

REACTIONS (1)
  - ASTHENIA [None]
